FAERS Safety Report 9416249 (Version 1)
Quarter: 2013Q3

REPORT INFORMATION
  Report Type: Spontaneous
  Country: KR (occurrence: None)
  Receive Date: 20130718
  Receipt Date: 20130718
  Transmission Date: 20140515
  Serious: Yes (Other)
  Sender: FDA-Public Use
  Company Number: SYM-2013-06226

PATIENT
  Sex: Female

DRUGS (5)
  1. FLUOROURACIL (FLUOROURACIL) (FLUOROURACIL) [Suspect]
     Indication: OVARIAN EPITHELIAL CANCER
     Route: 040
  2. OXALIPATIN [Suspect]
     Indication: OVARIAN EPITHELIAL CANCER
  3. LEUCOVORIN (FOLINIC ACID) (FOLINIC ACID) [Suspect]
     Indication: OVARIAN EPITHELIAL CANCER
  4. PLATINUM [Suspect]
  5. TAXANES [Suspect]

REACTIONS (2)
  - Nausea [None]
  - Vomiting [None]
